FAERS Safety Report 23432992 (Version 1)
Quarter: 2024Q1

REPORT INFORMATION
  Report Type: Spontaneous
  Country: US (occurrence: US)
  Receive Date: 20240123
  Receipt Date: 20240123
  Transmission Date: 20240410
  Serious: No
  Sender: FDA-Public Use
  Company Number: US-SA-2024SA018303

PATIENT
  Age: 72 Year
  Sex: Male

DRUGS (1)
  1. DUPIXENT [Suspect]
     Active Substance: DUPILUMAB
     Indication: Dermatitis atopic
     Dosage: 300 MG, QOW
     Route: 058

REACTIONS (6)
  - Sinusitis [Unknown]
  - Pain in jaw [Recovering/Resolving]
  - Condition aggravated [Recovering/Resolving]
  - Toothache [Recovering/Resolving]
  - Condition aggravated [Recovering/Resolving]
  - Mastication disorder [Unknown]

NARRATIVE: CASE EVENT DATE: 20231201
